FAERS Safety Report 16843342 (Version 1)
Quarter: 2019Q3

REPORT INFORMATION
  Report Type: Spontaneous
  Country: US (occurrence: US)
  Receive Date: 20190802
  Receipt Date: 20190802
  Transmission Date: 20191005
  Serious: Yes (Hospitalization)
  Sender: FDA-Public Use
  Company Number: None

PATIENT
  Age: 69 Year
  Sex: Male

DRUGS (14)
  1. DACARBAZINE. [Concomitant]
     Active Substance: DACARBAZINE
  2. DOXORUBICIN [Concomitant]
     Active Substance: DOXORUBICIN
  3. BRENTUXIMAB [Concomitant]
     Active Substance: BRENTUXIMAB VEDOTIN
  4. ONDANSETRON [Concomitant]
     Active Substance: ONDANSETRON
  5. ZOLPIDEM [Concomitant]
     Active Substance: ZOLPIDEM TARTRATE
  6. VINBLASTINE [Suspect]
     Active Substance: VINBLASTINE
     Indication: NEOPLASM MALIGNANT
     Dosage: ?          OTHER DOSE:6MG/M2 ;?
     Route: 042
     Dates: start: 20190501
  7. ACETYLCYSTEINE. [Concomitant]
     Active Substance: ACETYLCYSTEINE
  8. COENZYME Q10 [Concomitant]
     Active Substance: UBIDECARENONE
  9. MULTIVITAMIN [Concomitant]
     Active Substance: VITAMINS
  10. ALBUTEROL. [Concomitant]
     Active Substance: ALBUTEROL
  11. FUROSEMIDE. [Concomitant]
     Active Substance: FUROSEMIDE
  12. BISACODYL. [Concomitant]
     Active Substance: BISACODYL
  13. GUAFENESIN [Concomitant]
     Active Substance: GUAIFENESIN
  14. LANSOPRAZOLE. [Concomitant]
     Active Substance: LANSOPRAZOLE

REACTIONS (5)
  - Headache [None]
  - Hyponatraemia [None]
  - Dysarthria [None]
  - Nausea [None]
  - Decreased appetite [None]

NARRATIVE: CASE EVENT DATE: 20190510
